FAERS Safety Report 8950346 (Version 1)
Quarter: 2012Q4

REPORT INFORMATION
  Report Type: Spontaneous
  Country: US (occurrence: None)
  Receive Date: 20121130
  Receipt Date: 20121130
  Transmission Date: 20130627
  Serious: Yes (Other)
  Sender: FDA-Public Use
  Company Number: None

PATIENT
  Age: 64 Year
  Sex: Male

DRUGS (1)
  1. FORTEO [Suspect]
     Dosage: 20mcg daily subq
     Route: 058
     Dates: start: 20120614

REACTIONS (7)
  - Headache [None]
  - Visual impairment [None]
  - Dizziness [None]
  - Oedema peripheral [None]
  - Oedema peripheral [None]
  - Abnormal behaviour [None]
  - Abnormal dreams [None]
